FAERS Safety Report 6000301-X (Version None)
Quarter: 2008Q4

REPORT INFORMATION
  Report Type: 
  Country: None (occurrence: None)
  Receive Date: 20081215
  Receipt Date: 20081203
  Transmission Date: 20090506
  Serious: Yes (Other)
  Sender: FDA-Public Use
  Company Number: FR-ROCHE-599706

PATIENT
  Age: 54 Year
  Sex: Female

DRUGS (2)
  1. BONIVA [Suspect]
     Indication: OSTEOPOROSIS
     Route: 048
  2. STEROGYL [Concomitant]

REACTIONS (2)
  - FAILURE OF IMPLANT [None]
  - JAW DISORDER [None]
